FAERS Safety Report 6981949-2 (Version None)
Quarter: 2010Q3

REPORT INFORMATION
  Report Type: 
  Country: None (occurrence: None)
  Receive Date: 20100914
  Receipt Date: 20090926
  Transmission Date: 20110219
  Serious: No
  Sender: FDA-Public Use
  Company Number: US-PFIZER INC-2009276262

PATIENT
  Sex: Male
  Weight: 70.3 kg

DRUGS (8)
  1. LYRICA [Suspect]
     Indication: PAIN IN EXTREMITY
     Dosage: 300 MG, 2X/DAY
     Dates: start: 20090101
  2. LOVENOX [Concomitant]
     Indication: PULMONARY EMBOLISM
     Dosage: 120 MG, 1X/DAY
  3. LOVENOX [Concomitant]
     Indication: DEEP VEIN THROMBOSIS
  4. LISINOPRIL [Concomitant]
     Indication: HYPERTENSION
     Dosage: 40 MG, 1X/DAY
  5. OXYCONTIN [Concomitant]
     Dosage: 30 MG, 2X/DAY
  6. PERCOCET [Concomitant]
     Dosage: 10 MG, 2X/DAY
  7. VALIUM [Concomitant]
     Dosage: 10 MG, AS NEEDED
  8. AMBIEN [Concomitant]
     Dosage: UNK

REACTIONS (2)
  - JOINT SWELLING [None]
  - SWOLLEN TONGUE [None]
